FAERS Safety Report 9798130 (Version 2)
Quarter: 2014Q1

REPORT INFORMATION
  Report Type: Spontaneous
  Country: IT (occurrence: IT)
  Receive Date: 20140106
  Receipt Date: 20140305
  Transmission Date: 20141002
  Serious: Yes (Hospitalization)
  Sender: FDA-Public Use
  Company Number: IT-SA-2013SA136317

PATIENT
  Age: 55 Year
  Sex: Male

DRUGS (4)
  1. ARAVA [Suspect]
     Indication: PSORIATIC ARTHROPATHY
     Route: 048
     Dates: start: 20130920, end: 20131121
  2. TRIATEC HCT [Suspect]
     Indication: HYPERTENSION
     Route: 048
     Dates: start: 20130315, end: 20131121
  3. TRAVOPROST [Concomitant]
     Indication: GLAUCOMA
     Route: 047
     Dates: start: 20130101, end: 20131123
  4. TIMOLOL MALEATE [Concomitant]
     Indication: GLAUCOMA
     Route: 047
     Dates: start: 20120101, end: 20131123

REACTIONS (1)
  - Drug reaction with eosinophilia and systemic symptoms [Recovering/Resolving]
